FAERS Safety Report 4985724-X (Version None)
Quarter: 2006Q2

REPORT INFORMATION
  Report Type: 
  Country: None (occurrence: None)
  Receive Date: 20060428
  Receipt Date: 20050808
  Transmission Date: 20061013
  Serious: No
  Sender: FDA-Public Use
  Company Number: US-GLAXOSMITHKLINE-A0569255A

PATIENT
  Age: 52 Year
  Sex: Male

DRUGS (3)
  1. ZOFRAN [Suspect]
     Indication: PROPHYLAXIS OF NAUSEA AND VOMITING
     Dosage: 8MG AS REQUIRED
     Route: 048
     Dates: start: 20040101
  2. KLONOPIN [Concomitant]
  3. MARIJUANA [Concomitant]

REACTIONS (2)
  - INCREASED APPETITE [None]
  - THERAPEUTIC RESPONSE UNEXPECTED [None]
